FAERS Safety Report 9088853 (Version 1)
Quarter: 2013Q1

REPORT INFORMATION
  Report Type: Report from Study
  Country: US (occurrence: US)
  Receive Date: 20130201
  Receipt Date: 20130201
  Transmission Date: 20140127
  Serious: No
  Sender: FDA-Public Use
  Company Number: US-ABBOTT-12P-163-1021209-00

PATIENT
  Sex: Male
  Weight: 74.91 kg

DRUGS (3)
  1. HUMIRA [Suspect]
     Indication: CROHN^S DISEASE
     Dates: start: 2012, end: 2012
  2. PREDNISONE [Concomitant]
     Indication: CROHN^S DISEASE
  3. TRAMADOL [Concomitant]
     Indication: PAIN

REACTIONS (1)
  - Drug ineffective [Not Recovered/Not Resolved]
